FAERS Safety Report 9542489 (Version 2)
Quarter: 2013Q3

REPORT INFORMATION
  Report Type: Report from Study
  Country: BR (occurrence: BR)
  Receive Date: 20130923
  Receipt Date: 20130923
  Transmission Date: 20140515
  Serious: Yes (Other)
  Sender: FDA-Public Use
  Company Number: PHHY2013BR101104

PATIENT
  Sex: Female

DRUGS (2)
  1. FORASEQ [Suspect]
     Indication: ASTHMA
     Dosage: 2 DF, BID (2 DF, MORNING AND AT NIGHT)
     Dates: start: 2005, end: 201308
  2. FORASEQ [Suspect]
     Dosage: 2 DF, BID (2 DF, MORNING AND AT NIGHT)

REACTIONS (5)
  - Visual impairment [Recovering/Resolving]
  - Vision blurred [Recovering/Resolving]
  - Dyspnoea [Recovering/Resolving]
  - Headache [Recovered/Resolved]
  - Expired drug administered [Unknown]
